FAERS Safety Report 7381635-3 (Version None)
Quarter: 2011Q1

REPORT INFORMATION
  Report Type: 
  Country: None (occurrence: None)
  Receive Date: 20110329
  Receipt Date: 20110321
  Transmission Date: 20110831
  Serious: Yes (Hospitalization)
  Sender: FDA-Public Use
  Company Number: FR-ASTRAZENECA-2011SE00128

PATIENT
  Age: 22 Month
  Sex: Female

DRUGS (1)
  1. EMLA [Suspect]
     Indication: ANAESTHESIA
     Dosage: ONCE
     Route: 061

REACTIONS (2)
  - INTENTIONAL DRUG MISUSE [None]
  - SKIN BURNING SENSATION [None]
